FAERS Safety Report 7699395-5 (Version None)
Quarter: 2011Q3

REPORT INFORMATION
  Report Type: 
  Country: None (occurrence: None)
  Receive Date: 20110819
  Receipt Date: 20110810
  Transmission Date: 20111222
  Serious: Yes (Hospitalization)
  Sender: FDA-Public Use
  Company Number: US-ASTRAZENECA-2010SE44463

PATIENT
  Age: 60 Year
  Sex: Male
  Weight: 99.8 kg

DRUGS (8)
  1. SEROQUEL XR [Suspect]
     Indication: PSYCHOTIC DISORDER
     Route: 048
  2. SEROQUEL XR [Suspect]
     Route: 048
  3. SEROQUEL XR [Suspect]
     Route: 048
  4. SEROQUEL XR [Suspect]
     Indication: BIPOLAR DISORDER
     Route: 048
  5. LAMICTAL [Concomitant]
  6. SEROQUEL XR [Suspect]
     Route: 048
  7. SEROQUEL XR [Suspect]
     Route: 048
  8. DEPAKOTE [Concomitant]

REACTIONS (9)
  - INCORRECT DOSE ADMINISTERED [None]
  - DRUG DOSE OMISSION [None]
  - PSYCHOTIC DISORDER [None]
  - TENSION [None]
  - MALAISE [None]
  - HALLUCINATION [None]
  - DECREASED ACTIVITY [None]
  - TREMOR [None]
  - ANGER [None]
